FAERS Safety Report 24778473 (Version 2)
Quarter: 2025Q1

REPORT INFORMATION
  Report Type: Spontaneous
  Country: US (occurrence: US)
  Receive Date: 20241226
  Receipt Date: 20250320
  Transmission Date: 20250409
  Serious: No
  Sender: SANOFI AVENTIS
  Company Number: US-SA-2024SA377694

PATIENT
  Age: 21 Year
  Sex: Male

DRUGS (7)
  1. DUPIXENT [Suspect]
     Active Substance: DUPILUMAB
     Indication: Dermatitis atopic
     Dosage: 300 MG, QOW
     Route: 058
     Dates: start: 20230408
  2. BENADRYL [Concomitant]
     Active Substance: DIPHENHYDRAMINE HYDROCHLORIDE
  3. DESONIDE [Concomitant]
     Active Substance: DESONIDE
  4. FLUOCINONIDE [Concomitant]
     Active Substance: FLUOCINONIDE
  5. PROTOPIC [Concomitant]
     Active Substance: TACROLIMUS
  6. Triamcinolon [Concomitant]
  7. XYZAL [Concomitant]
     Active Substance: LEVOCETIRIZINE DIHYDROCHLORIDE

REACTIONS (3)
  - Sleep disorder due to a general medical condition [Unknown]
  - Depression [Unknown]
  - Erythema [Recovered/Resolved]

NARRATIVE: CASE EVENT DATE: 20241101
